FAERS Safety Report 6494846-6 (Version None)
Quarter: 2009Q4

REPORT INFORMATION
  Report Type: 
  Country: None (occurrence: None)
  Receive Date: 20091214
  Receipt Date: 20091210
  Transmission Date: 20100525
  Serious: Yes (Death, Other)
  Sender: FDA-Public Use
  Company Number: PHHY2009BR54731

PATIENT
  Sex: Male

DRUGS (4)
  1. EXELON [Suspect]
     Indication: DEMENTIA ALZHEIMER'S TYPE
     Dosage: 1.5 MG, 1 CAPSULE PER DAY
  2. EXELON [Suspect]
     Dosage: 1.5 MG, 2 CAPSULES PER DAY
  3. EXELON [Suspect]
     Dosage: 4.5 MG, 1 CAPSULE PER DAY
  4. EXELON [Suspect]
     Dosage: 6 MG, 1 CAPSULE PER DAY

REACTIONS (4)
  - CONDITION AGGRAVATED [None]
  - DEATH [None]
  - DEMENTIA ALZHEIMER'S TYPE [None]
  - DYSPHAGIA [None]
